FAERS Safety Report 4378331-3 (Version None)
Quarter: 2004Q2

REPORT INFORMATION
  Report Type: 
  Country: None (occurrence: None)
  Receive Date: 20040609
  Receipt Date: 20040528
  Transmission Date: 20050107
  Serious: Yes (Hospitalization, Other)
  Sender: FDA-Public Use
  Company Number: 2004036446

PATIENT
  Age: 63 Year
  Sex: Female
  Weight: 77.1115 kg

DRUGS (6)
  1. LIPITOR [Suspect]
     Indication: BLOOD CHOLESTEROL INCREASED
     Dosage: 1 IN 1 D, ORAL
     Route: 048
     Dates: start: 20020401
  2. RAMIPRIL [Concomitant]
  3. ATENOLOL [Concomitant]
  4. ACETYLSALICYLIC ACID SRT [Concomitant]
  5. MULTIVITAMINS (ASCORBIC ACID, ERGOCALCIFEROL, FOLIC ACID, NICOTINAMIDE [Concomitant]
  6. TOCOPHEROL CONCENTRATE CAP [Concomitant]

REACTIONS (5)
  - ARRHYTHMIA [None]
  - CARDIAC FAILURE CONGESTIVE [None]
  - EXERCISE TEST ABNORMAL [None]
  - PALPITATIONS [None]
  - PERICARDIAL EFFUSION [None]
